FAERS Safety Report 8695036 (Version 2)
Quarter: 2013Q4

REPORT INFORMATION
  Report Type: Report from Study
  Country: JP (occurrence: JP)
  Receive Date: 20120731
  Receipt Date: 20131107
  Transmission Date: 20140711
  Serious: Yes (Other)
  Sender: FDA-Public Use
  Company Number: JP-009507513-1207JPN010122

PATIENT
  Age: 75 Year
  Sex: Female
  Weight: 52 kg

DRUGS (9)
  1. PEGINTRON [Suspect]
     Indication: HEPATITIS C
     Dosage: 1.2MCG/KG/WEEK
     Route: 058
     Dates: start: 20120508, end: 20120618
  2. REBETOL [Suspect]
     Indication: HEPATITIS C
     Route: 048
     Dates: start: 20120508, end: 20120529
  3. REBETOL [Suspect]
     Indication: HEPATITIS C
     Route: 048
     Dates: start: 20120530, end: 20120618
  4. TELAVIC [Suspect]
     Indication: HEPATITIS C
     Route: 048
     Dates: start: 20120508, end: 20120613
  5. LIVALO [Concomitant]
     Indication: HYPERLIPIDAEMIA
     Route: 048
  6. EPADEL S [Concomitant]
     Indication: HYPERLIPIDAEMIA
     Route: 048
  7. FEROTYM [Concomitant]
     Indication: IRON DEFICIENCY ANAEMIA
     Route: 048
  8. CLARITIN REDITABS [Concomitant]
     Indication: PROPHYLAXIS
     Route: 048
  9. ALOSENN (SENNA) [Concomitant]
     Indication: CONSTIPATION
     Route: 048

REACTIONS (1)
  - Anaemia [Not Recovered/Not Resolved]
